FAERS Safety Report 8810368 (Version 1)
Quarter: 2012Q4

REPORT INFORMATION
  Report Type: 
  Country: US (occurrence: US)
  Receive Date: 20120926
  Receipt Date: 20120926
  Transmission Date: 20130627
  Serious: No
  Sender: FDA-Public Use
  Company Number: US-009507513-1207USA004798

PATIENT
  Age: 60 Year
  Sex: Female
  Weight: 47.62 kg

DRUGS (3)
  1. DULERA [Suspect]
     Indication: CHRONIC OBSTRUCTIVE PULMONARY DISEASE
     Dosage: 200 units, bid
     Route: 045
  2. PROVENTIL [Concomitant]
     Dosage: UNK
     Dates: start: 2009
  3. SPIRIVA [Concomitant]
     Dosage: UNK
     Dates: start: 2009

REACTIONS (1)
  - Rash morbilliform [Recovered/Resolved]
